FAERS Safety Report 9661084 (Version 3)
Quarter: 2014Q1

REPORT INFORMATION
  Report Type: Report from Study
  Country: JP (occurrence: JP)
  Receive Date: 20131031
  Receipt Date: 20140305
  Transmission Date: 20141002
  Serious: Yes (Hospitalization)
  Sender: FDA-Public Use
  Company Number: JP-TAKEDA-2013TJP002247

PATIENT
  Age: 62 Year
  Sex: Male
  Weight: 43.7 kg

DRUGS (2)
  1. ALOGLIPTIN [Suspect]
     Indication: TYPE 2 DIABETES MELLITUS
     Dosage: 25 MG, QD
     Route: 048
     Dates: start: 20120509, end: 20120823
  2. GLUCOBAY [Concomitant]
     Indication: TYPE 2 DIABETES MELLITUS
     Dosage: 100 MG, TID
     Route: 048
     Dates: start: 20080715

REACTIONS (2)
  - Intraductal papillary mucinous neoplasm [Recovering/Resolving]
  - Condition aggravated [Recovering/Resolving]
